FAERS Safety Report 23888019 (Version 1)
Quarter: 2024Q2

REPORT INFORMATION
  Report Type: Spontaneous
  Country: US (occurrence: US)
  Receive Date: 20240523
  Receipt Date: 20240523
  Transmission Date: 20240716
  Serious: No
  Sender: FDA-Public Use
  Company Number: US-AUROBINDO-AUR-APL-2023-037878

PATIENT
  Age: 61 Year
  Sex: Male
  Weight: 67.13 kg

DRUGS (3)
  1. LORATADINE [Suspect]
     Active Substance: LORATADINE
     Indication: Product used for unknown indication
     Dosage: 1 DOSAGE FORM, DAILY
     Route: 065
     Dates: start: 20230516
  2. BENADRYL [Concomitant]
     Active Substance: DIPHENHYDRAMINE HYDROCHLORIDE
     Indication: Product used for unknown indication
     Dosage: UNK
     Route: 065
  3. MAVYRET [Concomitant]
     Active Substance: GLECAPREVIR\PIBRENTASVIR
     Indication: Hepatitis C
     Dosage: UNK,03 PILLS A DAY FOR 08 WEEKS
     Route: 065

REACTIONS (4)
  - Drug ineffective [Recovering/Resolving]
  - Wrong technique in product usage process [Recovering/Resolving]
  - Abdominal distension [Recovering/Resolving]
  - Urticaria [Recovering/Resolving]
